FAERS Safety Report 10419300 (Version 1)
Quarter: 2014Q2

REPORT INFORMATION
  Report Type: Report from Study
  Country: US (occurrence: None)
  Receive Date: 20140627
  Receipt Date: 20140627
  Transmission Date: 20141212
  Serious: No
  Sender: FDA-Public Use
  Company Number: CABO 14004105

PATIENT
  Age: 61 Year
  Sex: Male

DRUGS (1)
  1. COMETRIQ (CABOZANTINIB) CAPSULE [Suspect]
     Indication: THYROID CANCER
     Route: 048
     Dates: start: 20140226, end: 20140302

REACTIONS (12)
  - Contusion [None]
  - Blood pressure increased [None]
  - Diarrhoea [None]
  - Stomatitis [None]
  - Ageusia [None]
  - Tongue ulceration [None]
  - Skin ulcer [None]
  - Rash [None]
  - Blister [None]
  - Pain [None]
  - Palmar-plantar erythrodysaesthesia syndrome [None]
  - Weight decreased [None]
